FAERS Safety Report 6630776-4 (Version None)
Quarter: 2010Q1

REPORT INFORMATION
  Report Type: 
  Country: None (occurrence: None)
  Receive Date: 20100311
  Receipt Date: 20100301
  Transmission Date: 20100710
  Serious: Yes (Other)
  Sender: FDA-Public Use
  Company Number: US-ABBOTT-10P-163-0629863-00

PATIENT
  Sex: Female
  Weight: 63.56 kg

DRUGS (2)
  1. SYNTHROID [Suspect]
     Indication: GOITRE
     Dosage: DOSE UNKNOWN
     Route: 048
     Dates: start: 19630101, end: 20080101
  2. SYNTHROID [Suspect]
     Route: 048
     Dates: start: 20100101

REACTIONS (8)
  - ANXIETY [None]
  - CALCINOSIS [None]
  - FEELING ABNORMAL [None]
  - HYPERTENSION [None]
  - HYPOPITUITARISM [None]
  - NERVOUSNESS [None]
  - THYROID DISORDER [None]
  - WEIGHT DECREASED [None]
